FAERS Safety Report 4549157-2 (Version None)
Quarter: 2005Q1

REPORT INFORMATION
  Report Type: 
  Country: None (occurrence: None)
  Receive Date: 20050107
  Receipt Date: 20050107
  Transmission Date: 20050727
  Serious: Yes (Hospitalization)
  Sender: FDA-Public Use
  Company Number: None

PATIENT
  Sex: Female
  Weight: 90 kg

DRUGS (1)
  1. LOVENOX [Suspect]
     Indication: THROMBOSIS PROPHYLAXIS
     Dosage: 80 MG Q 24HRS SUBCUTANEOUS
     Route: 058
     Dates: start: 20040406, end: 20041230

REACTIONS (2)
  - ABDOMINAL PAIN [None]
  - INJECTION SITE HAEMORRHAGE [None]
